FAERS Safety Report 8917764 (Version 4)
Quarter: 2013Q1

REPORT INFORMATION
  Report Type: Spontaneous
  Country: DE (occurrence: DE)
  Receive Date: 20121120
  Receipt Date: 20130112
  Transmission Date: 20140127
  Serious: Yes (Hospitalization, Other)
  Sender: FDA-Public Use
  Company Number: DE-AMGEN-DEUSP2012073424

PATIENT
  Age: 54 Year
  Sex: Female
  Weight: 45 kg

DRUGS (6)
  1. XGEVA [Suspect]
     Indication: METASTASES TO BONE
     Dosage: 120 MG, Q4WK
     Route: 058
     Dates: start: 20111006
  2. XELODA [Concomitant]
  3. AVASTIN /00848101/ [Concomitant]
  4. CALCIUM + VITAMIN D3 [Concomitant]
  5. FASLODEX                           /01285001/ [Concomitant]
  6. ANTINEOPLASTIC AGENTS [Concomitant]

REACTIONS (3)
  - Humerus fracture [Recovering/Resolving]
  - Fall [Unknown]
  - Vitamin D deficiency [Unknown]
